FAERS Safety Report 9348884 (Version 1)
Quarter: 2013Q2

REPORT INFORMATION
  Report Type: Spontaneous
  Country: US (occurrence: US)
  Receive Date: 20130614
  Receipt Date: 20130614
  Transmission Date: 20140414
  Serious: No
  Sender: FDA-Public Use
  Company Number: US-BAYER-2013-073453

PATIENT
  Age: 56 Year
  Sex: Male
  Weight: 113 kg

DRUGS (6)
  1. BETASERON [Suspect]
     Indication: MULTIPLE SCLEROSIS
     Dosage: UNK
     Dates: start: 200805, end: 200911
  2. OXYCODONE [Concomitant]
  3. CARBAMAZEPIN [Concomitant]
  4. SKELAXIN [Concomitant]
  5. FLOMAX (MORNIFLUMATE) [Concomitant]
  6. BYSTOLIC [Concomitant]

REACTIONS (1)
  - Influenza like illness [Not Recovered/Not Resolved]
